FAERS Safety Report 5955018-4 (Version None)
Quarter: 2008Q4

REPORT INFORMATION
  Report Type: 
  Country: None (occurrence: None)
  Receive Date: 20081117
  Receipt Date: 20081117
  Transmission Date: 20090506
  Serious: Yes (Death)
  Sender: FDA-Public Use
  Company Number: A0734375A

PATIENT
  Sex: Male

DRUGS (1)
  1. AVANDIA [Suspect]
     Route: 048

REACTIONS (4)
  - ANXIETY [None]
  - HEART INJURY [None]
  - MYOCARDIAL INFARCTION [None]
  - PAIN [None]
